FAERS Safety Report 5332591-0 (Version None)
Quarter: 2007Q2

REPORT INFORMATION
  Report Type: 
  Country: None (occurrence: None)
  Receive Date: 20070523
  Receipt Date: 20070517
  Transmission Date: 20071010
  Serious: Yes (Hospitalization)
  Sender: FDA-Public Use
  Company Number: AU-BOEHRINGER INGELHEIM PHARMACEUTICALS, INC.-2007-BP-06783AU

PATIENT
  Sex: Female
  Weight: 90 kg

DRUGS (6)
  1. ASASANTIN SR (CAPSULE, LONG ACTING) [Suspect]
     Indication: TRANSIENT ISCHAEMIC ATTACK
     Dosage: 400/50 MG
     Route: 048
     Dates: start: 20070129, end: 20070201
  2. ENALAPRIL [Concomitant]
  3. METFORMIN HCL [Concomitant]
  4. SIMVASTATIN [Concomitant]
  5. LUMIRACOXIB [Concomitant]
  6. SERETIDE (FLUTICASONE/SALMETAROL) [Concomitant]

REACTIONS (2)
  - NEUTROPENIA [None]
  - VITAMIN B12 DEFICIENCY [None]
